FAERS Safety Report 7007921-4 (Version None)
Quarter: 2010Q3

REPORT INFORMATION
  Report Type: 
  Country: None (occurrence: None)
  Receive Date: 20100920
  Receipt Date: 20100905
  Transmission Date: 20110219
  Serious: Yes (Other)
  Sender: FDA-Public Use
  Company Number: GB-DEXPHARM-20101450

PATIENT
  Age: 69 Year
  Sex: Male

DRUGS (2)
  1. OMEPRAZOLE [Suspect]
     Dosage: 20 MG MILLIGRAM(S)
  2. CIPRALEX ACTIVE SUBSTANCES: ESCITALOPRAM [Suspect]
     Dosage: 10 MG MILLIGRAM(S) SEP DOSAGES/INTERVAL: 1 IN 1 DAY

REACTIONS (3)
  - BLOOD PRESSURE INCREASED [None]
  - CEREBRAL HAEMORRHAGE [None]
  - INTRACRANIAL ANEURYSM [None]
